FAERS Safety Report 10861993 (Version 1)
Quarter: 2015Q1

REPORT INFORMATION
  Report Type: Spontaneous
  Country: JP (occurrence: JP)
  Receive Date: 20150224
  Receipt Date: 20150224
  Transmission Date: 20150721
  Serious: Yes (Other)
  Sender: FDA-Public Use
  Company Number: PHJP2015JP001953

PATIENT
  Age: 86 Year
  Sex: Male

DRUGS (2)
  1. ONBREZ [Concomitant]
     Active Substance: INDACATEROL
     Indication: CHRONIC OBSTRUCTIVE PULMONARY DISEASE
     Dosage: UNK
     Route: 065
  2. ULTIBRO INHALATION CAPSULES [Suspect]
     Active Substance: GLYCOPYRRONIUM\INDACATEROL
     Indication: CHRONIC OBSTRUCTIVE PULMONARY DISEASE
     Dosage: 1 DF, QD
     Route: 048

REACTIONS (6)
  - Therapeutic response unexpected [Unknown]
  - Neoplasm malignant [Unknown]
  - Anxiety [Unknown]
  - Micturition frequency decreased [Unknown]
  - Parkinson^s disease [Unknown]
  - Gastric disorder [Unknown]

NARRATIVE: CASE EVENT DATE: 201502
